FAERS Safety Report 6108817-2 (Version None)
Quarter: 2009Q1

REPORT INFORMATION
  Report Type: 
  Country: None (occurrence: None)
  Receive Date: 20090310
  Receipt Date: 20090305
  Transmission Date: 20090719
  Serious: Yes (Hospitalization, Other)
  Sender: FDA-Public Use
  Company Number: FR-BRISTOL-MYERS SQUIBB COMPANY-14531404

PATIENT
  Age: 55 Year
  Sex: Male

DRUGS (7)
  1. ETOPOSIDE [Suspect]
     Indication: TESTICULAR SEMINOMA (PURE)
     Dosage: START DATE: 12NOV08 1100MG PER COURSE
     Route: 042
     Dates: start: 20081228, end: 20081228
  2. CISPLATIN [Suspect]
     Indication: TESTICULAR SEMINOMA (PURE)
     Dosage: START DATE:12NOV08 215MG PER COURSE
     Route: 042
     Dates: start: 20081228, end: 20081228
  3. BLEOMYCIN SULFATE [Suspect]
     Indication: TESTICULAR SEMINOMA (PURE)
     Dosage: START DATE: 12NOV08 75MG PER COURSE
     Route: 042
     Dates: start: 20081228, end: 20081228
  4. CORDARONE [Concomitant]
  5. PREVISCAN [Concomitant]
     Route: 048
  6. MICARDIS [Concomitant]
     Route: 048
  7. SPIRONOLACTONE [Concomitant]

REACTIONS (3)
  - HAEMOLYTIC URAEMIC SYNDROME [None]
  - LEUKOPENIA [None]
  - THROMBOTIC MICROANGIOPATHY [None]
